FAERS Safety Report 15215807 (Version 1)
Quarter: 2018Q4

REPORT INFORMATION
  Report Type: Other
  Country: PT (occurrence: PT)
  Receive Date: 20180730
  Receipt Date: 20180730
  Transmission Date: 20190204
  Serious: Yes (Life-Threatening, Hospitalization, Other)
  Sender: FDA-Public Use
  Company Number: PT-IPCA LABORATORIES LIMITED-IPC-2018-PT-001539

PATIENT

DRUGS (9)
  1. CASCARA [Interacting]
     Active Substance: RHAMNUS PURSHIANA BARK EXTRACT
     Indication: WEIGHT DECREASED
     Dosage: 120 MG, QD
     Route: 048
     Dates: start: 2017
  2. TOPIRAMATE. [Interacting]
     Active Substance: TOPIRAMATE
     Indication: WEIGHT DECREASED
     Dosage: 70 MG, QD
     Route: 048
     Dates: start: 2017
  3. METFORMIN [Interacting]
     Active Substance: METFORMIN HYDROCHLORIDE
     Indication: WEIGHT DECREASED
     Dosage: 460 MG, QD
     Route: 048
     Dates: start: 2017
  4. TRI-GYNERA [Interacting]
     Active Substance: ETHINYL ESTRADIOL\GESTODENE
     Indication: CONTRACEPTION
     Dosage: UNK
     Route: 065
  5. HOODIA GORDONII [Interacting]
     Active Substance: DIETARY SUPPLEMENT
     Indication: WEIGHT DECREASED
     Dosage: 140 MG, QD
     Route: 048
     Dates: start: 2017
  6. CHLORDIAZEPOXIDE. [Interacting]
     Active Substance: CHLORDIAZEPOXIDE
     Indication: WEIGHT DECREASED
     Dosage: 20 MG, QD
     Route: 048
     Dates: start: 2017
  7. FUROSEMIDE. [Suspect]
     Active Substance: FUROSEMIDE
     Indication: WEIGHT DECREASED
     Dosage: 60 MG, QD
     Route: 048
     Dates: start: 2017
  8. BUPROPION. [Interacting]
     Active Substance: BUPROPION
     Indication: WEIGHT DECREASED
     Dosage: 240 MG, QD
     Route: 048
     Dates: start: 2017
  9. EXTRACTION OF LARANJA [Interacting]
     Active Substance: DIETARY SUPPLEMENT\HERBALS
     Indication: WEIGHT DECREASED
     Dosage: 400 MG, QD
     Route: 048
     Dates: start: 2017

REACTIONS (3)
  - Drug interaction [Unknown]
  - Product use in unapproved indication [Unknown]
  - Cerebral venous thrombosis [Recovering/Resolving]

NARRATIVE: CASE EVENT DATE: 20180619
